FAERS Safety Report 18618469 (Version 1)
Quarter: 2020Q4

REPORT INFORMATION
  Report Type: Spontaneous
  Country: US (occurrence: US)
  Receive Date: 20201215
  Receipt Date: 20201215
  Transmission Date: 20210114
  Serious: No
  Sender: FDA-Public Use
  Company Number: US-PFIZER INC-2020486581

PATIENT
  Age: 67 Year
  Sex: Female
  Weight: 79.38 kg

DRUGS (4)
  1. IBRANCE [Suspect]
     Active Substance: PALBOCICLIB
     Dosage: UNK
  2. ANASTROZOLE. [Concomitant]
     Active Substance: ANASTROZOLE
     Dosage: UNK
  3. IBRANCE [Suspect]
     Active Substance: PALBOCICLIB
     Indication: BREAST CANCER
     Dosage: 125 MG, CYCLIC (125MG ONE CAPSULE, DAILY FOR THREE WEEKS)
     Route: 048
     Dates: start: 202011
  4. FULVESTRANT. [Concomitant]
     Active Substance: FULVESTRANT
     Dosage: UNK (TWO INJECTIONS)

REACTIONS (1)
  - Fatigue [Unknown]

NARRATIVE: CASE EVENT DATE: 202011
